FAERS Safety Report 22041920 (Version 5)
Quarter: 2023Q1

REPORT INFORMATION
  Report Type: Report from Study
  Country: ES (occurrence: ES)
  Receive Date: 20230227
  Receipt Date: 20230320
  Transmission Date: 20230418
  Serious: Yes (Hospitalization)
  Sender: FDA-Public Use
  Company Number: ES-JNJFOC-20230201288

PATIENT
  Age: 69 Year
  Sex: Female
  Weight: 46.1 kg

DRUGS (17)
  1. TECLISTAMAB [Suspect]
     Active Substance: TECLISTAMAB
     Indication: Plasma cell myeloma refractory
     Route: 058
     Dates: start: 20221122, end: 20221125
  2. TECLISTAMAB [Suspect]
     Active Substance: TECLISTAMAB
     Dosage: MOST RECENT DOSE 17-JAN-2023
     Route: 058
     Dates: start: 20221128
  3. DARATUMUMAB [Suspect]
     Active Substance: DARATUMUMAB
     Indication: Plasma cell myeloma refractory
     Dosage: MOST RECENT DOSE 17-JAN-2023
     Route: 058
     Dates: start: 20221121
  4. TRAMADOL [Concomitant]
     Active Substance: TRAMADOL
     Indication: Back pain
     Route: 048
     Dates: start: 20220714
  5. ACYCLOVIR [Concomitant]
     Active Substance: ACYCLOVIR
     Indication: Infection prophylaxis
     Route: 048
     Dates: start: 20221130
  6. ALPRAZOLAM [Concomitant]
     Active Substance: ALPRAZOLAM
     Indication: Sleep disorder therapy
     Route: 048
     Dates: start: 20221130
  7. SULFAMETHOXAZOLE\TRIMETHOPRIM [Concomitant]
     Active Substance: SULFAMETHOXAZOLE\TRIMETHOPRIM
     Indication: Infection prophylaxis
     Dosage: 160/800
     Route: 048
     Dates: start: 20221130
  8. DARBEPOETIN ALFA [Concomitant]
     Active Substance: DARBEPOETIN ALFA
     Indication: Anaemia
     Route: 058
     Dates: start: 20230117, end: 20230117
  9. FILGRASTIM [Concomitant]
     Active Substance: FILGRASTIM
     Indication: Neutropenia
     Route: 058
     Dates: start: 20230117, end: 20230119
  10. FILGRASTIM [Concomitant]
     Active Substance: FILGRASTIM
     Indication: Febrile neutropenia
     Route: 058
     Dates: start: 20230115, end: 20230116
  11. EBASTINE [Concomitant]
     Active Substance: EBASTINE
     Indication: Mite allergy
     Route: 048
  12. EBASTINE [Concomitant]
     Active Substance: EBASTINE
     Indication: Seasonal allergy
  13. OMEPRAZOLE [Concomitant]
     Active Substance: OMEPRAZOLE
     Indication: Prophylaxis against gastrointestinal ulcer
     Route: 048
  14. CHOLECALCIFEROL [Concomitant]
     Active Substance: CHOLECALCIFEROL
     Indication: Vitamin supplementation
     Route: 048
  15. CEFIXIME [Concomitant]
     Active Substance: CEFIXIME
     Indication: Pyrexia
     Route: 048
     Dates: start: 20230110, end: 20230117
  16. AMOXICILLIN\CLAVULANIC ACID [Concomitant]
     Active Substance: AMOXICILLIN\CLAVULANIC ACID
     Indication: Campylobacter infection
     Dosage: 1000/200
     Route: 042
     Dates: start: 20230202, end: 20230210
  17. FLEBOGAMMA [Concomitant]
     Active Substance: HUMAN IMMUNOGLOBULIN G
     Indication: Infection prophylaxis
     Route: 042
     Dates: start: 20230207, end: 20230207

REACTIONS (2)
  - Febrile neutropenia [Recovered/Resolved]
  - Cytomegalovirus infection reactivation [Recovered/Resolved]

NARRATIVE: CASE EVENT DATE: 20230131
